FAERS Safety Report 4443772-2 (Version None)
Quarter: 2004Q3

REPORT INFORMATION
  Report Type: 
  Country: None (occurrence: None)
  Receive Date: 20040729
  Receipt Date: 20040407
  Transmission Date: 20050211
  Serious: Yes (Death)
  Sender: FDA-Public Use
  Company Number: USA-2004-0014421

PATIENT
  Age: 30 Year
  Sex: Female
  Weight: 78.5 kg

DRUGS (17)
  1. MORPHINE SULFATE [Suspect]
     Dosage: MG,
  2. THEOPHYLLINE [Suspect]
     Dosage: MG,
  3. ACETAMINOPHEN [Suspect]
     Dosage: MG,
  4. CAFFEINE (CAFFEINE) [Suspect]
     Dosage: MG,
  5. COCAINE (COCAINE) [Suspect]
     Dosage: MG,
  6. METHADONE HCL [Suspect]
     Dosage: MG,
  7. NICOTINE [Suspect]
     Dosage: MG,
  8. PHENOTHIAZINE (PHENOTHIAZINE) [Suspect]
     Dosage: MG,
  9. PSEUDOEPHEDRINE HCL [Suspect]
     Dosage: MG,
  10. ALPRAZOLAM [Suspect]
     Dosage: MG,
  11. SALICYLIC ACID (SALICYLIC ACID) [Suspect]
     Dosage: MG,
  12. CARISPRODOL [Concomitant]
  13. AMBIEN [Concomitant]
  14. FLURAZEPAM [Concomitant]
  15. EXCEDRIN (MIGRAINE) [Concomitant]
  16. PENICILLIN [Concomitant]
  17. FUROSEMIDE [Concomitant]

REACTIONS (1)
  - ACCIDENTAL OVERDOSE [None]
